FAERS Safety Report 5628257-X (Version None)
Quarter: 2008Q1

REPORT INFORMATION
  Report Type: 
  Country: None (occurrence: None)
  Receive Date: 20080215
  Receipt Date: 20080206
  Transmission Date: 20080703
  Serious: Yes (Death)
  Sender: FDA-Public Use
  Company Number: AU-SANOFI-SYNTHELABO-A01200801375

PATIENT
  Sex: Male

DRUGS (3)
  1. ANTIDEPRESSANTS [Concomitant]
     Indication: DRUG USE FOR UNKNOWN INDICATION
     Dosage: UNK
     Route: 065
  2. STILNOX [Suspect]
     Indication: DRUG USE FOR UNKNOWN INDICATION
     Dosage: 40 TABLETS IN THE MONTH
     Route: 048
     Dates: start: 20061101, end: 20061101
  3. STILNOX [Suspect]
     Dosage: 40 TABLETS IN THE MONTH
     Route: 048
     Dates: start: 20070101

REACTIONS (2)
  - COMPLETED SUICIDE [None]
  - DRUG TOXICITY [None]
